FAERS Safety Report 18215914 (Version 1)
Quarter: 2020Q3

REPORT INFORMATION
  Report Type: Spontaneous
  Country: US (occurrence: US)
  Receive Date: 20200901
  Receipt Date: 20200901
  Transmission Date: 20201103
  Serious: Yes (Hospitalization, Other)
  Sender: FDA-Public Use
  Company Number: US-MACLEODS PHARMACEUTICALS US LTD-MAC2020027829

PATIENT

DRUGS (5)
  1. PREDNISOLONE. [Suspect]
     Active Substance: PREDNISOLONE
     Indication: VOGT-KOYANAGI-HARADA DISEASE
     Dosage: UNK UNK, TID, 1% THREE TIMES DAILY IN BOTH EYES
  2. PREDNISONE. [Suspect]
     Active Substance: PREDNISONE
     Indication: VOGT-KOYANAGI-HARADA DISEASE
     Dosage: 25 MILLIGRAM, QD
     Route: 065
  3. TRIAMCINOLONE ACETONIDE. [Suspect]
     Active Substance: TRIAMCINOLONE ACETONIDE
     Indication: VOGT-KOYANAGI-HARADA DISEASE
     Dosage: 2 DOSAGE FORM, EVERY, TWO INJECTIONS OF SUB?TENON?S TRIAMCINOLONE ACETATE
     Route: 065
  4. ADALIMUMAB [Suspect]
     Active Substance: ADALIMUMAB
     Indication: VOGT-KOYANAGI-HARADA DISEASE
     Dosage: 6 DOSAGE FORM
     Route: 058
  5. MYCOPHENOLATE MOFETIL. [Suspect]
     Active Substance: MYCOPHENOLATE MOFETIL
     Indication: VOGT-KOYANAGI-HARADA DISEASE
     Dosage: 500 MILLIGRAM, BID
     Route: 065

REACTIONS (8)
  - Condition aggravated [Recovered/Resolved]
  - Hepatotoxicity [Unknown]
  - Eye pain [Recovered/Resolved]
  - Insomnia [Unknown]
  - Cystoid macular oedema [Recovered/Resolved]
  - Cataract [Recovered/Resolved]
  - Drug ineffective [Recovered/Resolved]
  - Necrosis [Unknown]
